FAERS Safety Report 8530700-3 (Version None)
Quarter: 2012Q3

REPORT INFORMATION
  Report Type: 
  Country: None (occurrence: None)
  Receive Date: 20120723
  Receipt Date: 20120712
  Transmission Date: 20120928
  Serious: Yes (Death, Other)
  Sender: FDA-Public Use
  Company Number: US-ROCHE-1084967

PATIENT
  Sex: Female

DRUGS (5)
  1. LUCENTIS [Suspect]
     Indication: AGE-RELATED MACULAR DEGENERATION
     Dates: end: 20120522
  2. ZOLPIDEM [Concomitant]
     Route: 048
  3. ESTRACE [Concomitant]
  4. NITROSTAT [Concomitant]
     Dosage: 0.3 UNITS
     Route: 058
  5. DIOVAN [Concomitant]

REACTIONS (4)
  - DYSPNOEA [None]
  - ANGINA PECTORIS [None]
  - MYOCARDIAL INFARCTION [None]
  - ADVERSE EVENT [None]
